FAERS Safety Report 8102473-X (Version None)
Quarter: 2012Q1

REPORT INFORMATION
  Report Type: 
  Country: None (occurrence: None)
  Receive Date: 20120201
  Receipt Date: 20120120
  Transmission Date: 20120608
  Serious: Yes (Other)
  Sender: FDA-Public Use
  Company Number: US-ELI_LILLY_AND_COMPANY-US201201006754

PATIENT
  Sex: Female

DRUGS (4)
  1. STRATTERA [Suspect]
     Dosage: 98 MG, UNK
     Dates: start: 20100101
  2. PROVIGIL [Concomitant]
     Dosage: UNK
     Dates: start: 20110101
  3. NUVIGIL [Concomitant]
     Dosage: 250 MG, UNK
     Dates: start: 20110101
  4. VENLAFAXINE [Concomitant]
     Dosage: 225 MG, UNK
     Dates: start: 20110101

REACTIONS (1)
  - MYOCLONUS [None]
